FAERS Safety Report 10417790 (Version 1)
Quarter: 2014Q2

REPORT INFORMATION
  Report Type: Spontaneous
  Country: US (occurrence: None)
  Receive Date: 20140609
  Receipt Date: 20140609
  Transmission Date: 20141212
  Serious: No
  Sender: FDA-Public Use
  Company Number: 2014TUS002217

PATIENT
  Age: 50 Year
  Sex: Female
  Weight: 51.7 kg

DRUGS (6)
  1. BRINTELLIX [Suspect]
     Indication: MAJOR DEPRESSION
     Route: 048
     Dates: start: 20140212, end: 20140307
  2. BRINTELLIX [Suspect]
     Indication: DEPRESSION
     Route: 048
     Dates: start: 20140212, end: 20140307
  3. TRAZODONE [Concomitant]
  4. FLUTICASONE [Concomitant]
  5. VENTOLIN /00139501/ (SALBUTAMOL) [Concomitant]
  6. SYMBICORT (BUDESONIDE, FORMOTEROL FUMARATE) [Concomitant]

REACTIONS (2)
  - Depression [None]
  - Muscle twitching [None]
